FAERS Safety Report 8450602-0 (Version None)
Quarter: 2012Q2

REPORT INFORMATION
  Report Type: 
  Country: None (occurrence: None)
  Receive Date: 20120620
  Receipt Date: 20120615
  Transmission Date: 20120825
  Serious: Yes (Other)
  Sender: FDA-Public Use
  Company Number: PHHO2011US06170

PATIENT
  Age: 71 Year
  Sex: Female
  Weight: 67 kg

DRUGS (15)
  1. SYNTHROID [Concomitant]
     Indication: HYPOTHYROIDISM
     Dosage: 0.88 UG, QD
     Route: 048
     Dates: start: 19520101
  2. ESTRING [Concomitant]
     Indication: VULVOVAGINAL DRYNESS
     Dosage: QUARTERLY
     Dates: start: 20080101
  3. LORAZEPAM [Concomitant]
     Indication: INSOMNIA
     Dosage: 0.5 TO 1 MG, PRN
     Route: 048
     Dates: start: 20100101
  4. CALCIUM WITH VITAMIN D [Concomitant]
     Dosage: 600 MG/ 460 ML, DAILY
     Route: 048
     Dates: start: 19800101
  5. NAPROXEN (ALEVE) [Concomitant]
     Indication: ARTHRALGIA
     Dosage: 200 MG Q4, PRN
     Route: 048
     Dates: start: 20101201
  6. FOLIC ACID [Concomitant]
     Indication: SUPPLEMENTATION THERAPY
     Dosage: 1 MG, QD
     Route: 048
     Dates: start: 20090901
  7. DIOVAN [Suspect]
     Indication: HYPERTENSION
     Dosage: 160 MG, QD
     Route: 048
     Dates: start: 20110207, end: 20110314
  8. VITAMIN D [Concomitant]
     Indication: SUPPLEMENTATION THERAPY
     Dosage: 1000 MG, QD
     Route: 048
     Dates: start: 20100901
  9. TRIAMCINOLONE [Concomitant]
     Indication: RASH
     Dosage: 0.1 %, BID
     Dates: start: 20110218
  10. AVAPRO [Concomitant]
     Indication: HYPERTENSION
     Dosage: 300 MG, QD
     Dates: start: 20100501, end: 20110207
  11. ALISKIREN [Suspect]
     Indication: HYPERTENSION
     Dosage: 300 MG, QD
     Route: 048
     Dates: start: 20100501
  12. UBIDECARENONE [Concomitant]
     Indication: CARDIAC DISORDER
     Dosage: 100 MG, QD
     Route: 048
     Dates: start: 20090101, end: 20090101
  13. SIMVASTATIN [Concomitant]
     Indication: BLOOD CHOLESTEROL
     Dosage: 10 MG, QD
     Route: 048
     Dates: start: 20080101
  14. ZYRTEC [Concomitant]
     Indication: HYPERSENSITIVITY
     Dosage: 1 DF, PRN
     Route: 048
     Dates: start: 20110218, end: 20110221
  15. MUCINEX [Concomitant]
     Indication: COUGH
     Dosage: 1 DF, PRN
     Route: 048
     Dates: start: 20110101

REACTIONS (1)
  - HYPONATRAEMIA [None]
